FAERS Safety Report 13948479 (Version 1)
Quarter: 2017Q3

REPORT INFORMATION
  Report Type: Spontaneous
  Country: US (occurrence: None)
  Receive Date: 20170907
  Receipt Date: 20170907
  Transmission Date: 20171128
  Serious: No
  Sender: FDA-Public Use
  Company Number: None

PATIENT
  Age: 63 Year
  Sex: Female

DRUGS (1)
  1. SIMPONI [Suspect]
     Active Substance: GOLIMUMAB
     Indication: RHEUMATOID ARTHRITIS
     Dosage: 50MG Q3DAYS SQ
     Route: 058
     Dates: start: 20170818, end: 20170819

REACTIONS (3)
  - Dyskinesia [None]
  - Tremor [None]
  - Muscle spasms [None]

NARRATIVE: CASE EVENT DATE: 20170902
